FAERS Safety Report 25087300 (Version 1)
Quarter: 2025Q1

REPORT INFORMATION
  Report Type: Spontaneous
  Country: CN (occurrence: CN)
  Receive Date: 20250318
  Receipt Date: 20250318
  Transmission Date: 20250409
  Serious: Yes (Life-Threatening, Hospitalization)
  Sender: ROCHE
  Company Number: CN-CHEPLA-2025003022

PATIENT
  Age: 61 Year
  Sex: Female
  Weight: 53.6 kg

DRUGS (3)
  1. BEVACIZUMAB [Suspect]
     Active Substance: BEVACIZUMAB
     Indication: Colon cancer
     Dosage: 0.3 G Q21D; APPROVAL NO. GYZZ S20233105; ROA: PUMP INJECTION
     Route: 065
     Dates: start: 20250203, end: 20250203
  2. CAPECITABINE [Suspect]
     Active Substance: CAPECITABINE
     Indication: Colon cancer
     Dosage: 1.5 G BID; APPROVAL NO. GYZZ H20073024
     Route: 048
     Dates: start: 20250203, end: 20250216
  3. SODIUM CHLORIDE [Concomitant]
     Active Substance: SODIUM CHLORIDE
     Indication: Product used for unknown indication
     Dosage: 100 ML Q21D; APPROVAL NO. GYZZ H51021156; MICROPUMP
     Route: 042
     Dates: start: 20250203, end: 20250203

REACTIONS (3)
  - Myelosuppression [Not Recovered/Not Resolved]
  - Haemorrhage subcutaneous [Not Recovered/Not Resolved]
  - Gingival bleeding [Not Recovered/Not Resolved]

NARRATIVE: CASE EVENT DATE: 20250222
